FAERS Safety Report 9274813 (Version 3)
Quarter: 2013Q2

REPORT INFORMATION
  Report Type: Spontaneous
  Country: JP (occurrence: JP)
  Receive Date: 20130507
  Receipt Date: 20130620
  Transmission Date: 20140414
  Serious: Yes (Death, Hospitalization)
  Sender: FDA-Public Use
  Company Number: JP-ROCHE-1219380

PATIENT
  Age: 78 Year
  Sex: Female

DRUGS (8)
  1. ACTEMRA [Suspect]
     Indication: STILL^S DISEASE ADULT ONSET
     Dosage: DOSAGE IS UNCERTAIN.
     Route: 041
     Dates: start: 200911
  2. ACTEMRA [Suspect]
     Indication: OFF LABEL USE
  3. PREDNISOLONE [Concomitant]
     Indication: STILL^S DISEASE ADULT ONSET
     Dosage: 10MG-40MG
     Route: 065
     Dates: start: 200802
  4. METHOTREXATE [Concomitant]
     Indication: STILL^S DISEASE ADULT ONSET
     Route: 065
     Dates: start: 200803
  5. BERAPROST SODIUM [Concomitant]
     Indication: PULMONARY HYPERTENSION
     Dosage: DOSAGE IS UNCERTAIN.
     Route: 065
     Dates: start: 200905
  6. BOSENTAN [Concomitant]
     Indication: PULMONARY HYPERTENSION
     Dosage: DOSAGE IS UNCERTAIN.
     Route: 065
     Dates: start: 200905
  7. SILDENAFIL CITRATE [Concomitant]
     Indication: PULMONARY HYPERTENSION
     Dosage: DOSAGE IS UNCERTAIN.
     Route: 065
     Dates: start: 200911
  8. PREDNISOLONE SODIUM SUCCINATE [Concomitant]
     Indication: STILL^S DISEASE ADULT ONSET
     Route: 041
     Dates: start: 201006, end: 201006

REACTIONS (4)
  - Pulmonary hypertension [Unknown]
  - Sepsis [Fatal]
  - Endocarditis bacterial [Fatal]
  - Cardiac failure [Fatal]
